FAERS Safety Report 7951153-X (Version None)
Quarter: 2011Q4

REPORT INFORMATION
  Report Type: 
  Country: None (occurrence: None)
  Receive Date: 20111123
  Receipt Date: 20111111
  Transmission Date: 20120403
  Serious: Yes (Disabling)
  Sender: FDA-Public Use
  Company Number: 2011SP044716

PATIENT
  Age: 39 Year
  Sex: Female

DRUGS (2)
  1. LITHIUM CARBONATE [Concomitant]
  2. SAPHRIS [Suspect]
     Indication: BIPOLAR DISORDER
     Dosage: 5 MG; HS; SL
     Route: 060
     Dates: start: 20110817, end: 20110908

REACTIONS (1)
  - ANGIOEDEMA [None]
